FAERS Safety Report 10275105 (Version 1)
Quarter: 2014Q3

REPORT INFORMATION
  Report Type: Spontaneous
  Country: FR (occurrence: FR)
  Receive Date: 20140703
  Receipt Date: 20140703
  Transmission Date: 20150326
  Serious: Yes (Hospitalization)
  Sender: FDA-Public Use
  Company Number: FR-009507513-1406FRA013956

PATIENT
  Age: 87 Year
  Sex: Female

DRUGS (6)
  1. MONO-TILDIEM [Suspect]
     Active Substance: DILTIAZEM HYDROCHLORIDE
     Route: 048
  2. CELESTENE 4MG/1ML [Suspect]
     Active Substance: BETAMETHASONE
     Indication: EAR PAIN
     Dosage: UNK
     Dates: start: 20140514
  3. CAPTEA [Suspect]
     Active Substance: CAPTOPRIL\HYDROCHLOROTHIAZIDE
     Dosage: 1 DF, QD
     Route: 048
  4. BACTRIM [Suspect]
     Active Substance: SULFAMETHOXAZOLE\TRIMETHOPRIM
     Indication: EAR PAIN
     Dosage: UNK
     Route: 048
     Dates: start: 20140514
  5. CILOXAN [Suspect]
     Active Substance: CIPROFLOXACIN HYDROCHLORIDE
     Dosage: UNK
  6. CILOXAN [Suspect]
     Active Substance: CIPROFLOXACIN HYDROCHLORIDE
     Indication: EAR PAIN
     Dosage: UNK
     Dates: start: 20140514

REACTIONS (6)
  - Photosensitivity reaction [Recovered/Resolved]
  - Nausea [Recovered/Resolved]
  - Oedema peripheral [Recovered/Resolved]
  - Pyrexia [Recovered/Resolved]
  - Pruritus [Recovered/Resolved]
  - Abdominal pain [Recovered/Resolved]

NARRATIVE: CASE EVENT DATE: 20140519
